FAERS Safety Report 23102336 (Version 1)
Quarter: 2023Q4

REPORT INFORMATION
  Report Type: Report from Study
  Country: US (occurrence: US)
  Receive Date: 20231025
  Receipt Date: 20231025
  Transmission Date: 20240110
  Serious: No
  Sender: FDA-Public Use
  Company Number: US-DECIPHERA PHARMACEUTICALS LLC-2023US000913

PATIENT
  Age: 54 Year
  Sex: Female

DRUGS (1)
  1. QINLOCK [Suspect]
     Active Substance: RIPRETINIB
     Indication: Gastrointestinal stromal tumour
     Dosage: 100 MILLIGRAM, QD
     Route: 048
     Dates: start: 20220801

REACTIONS (8)
  - Blood folate decreased [Unknown]
  - Vitamin D decreased [Unknown]
  - Glossodynia [Unknown]
  - Tongue disorder [Unknown]
  - Blood pressure fluctuation [Unknown]
  - Constipation [Unknown]
  - Dry skin [Unknown]
  - Myalgia [Unknown]
